FAERS Safety Report 6435583-3 (Version None)
Quarter: 2009Q4

REPORT INFORMATION
  Report Type: 
  Country: None (occurrence: None)
  Receive Date: 20091110
  Receipt Date: 20071016
  Transmission Date: 20100525
  Serious: No
  Sender: FDA-Public Use
  Company Number: AECAN200700247

PATIENT
  Age: 46 Year
  Sex: Female

DRUGS (6)
  1. GAMUNEX [Suspect]
     Indication: ASTHMA
     Dosage: 70 GM; QD; IV
     Route: 042
     Dates: start: 20070516, end: 20070517
  2. VENTOLIN [Concomitant]
  3. ATROVENT [Concomitant]
  4. DIOVOL [Concomitant]
  5. ADVAIR DISKUS 100/50 [Concomitant]
  6. PREDNISONE [Concomitant]

REACTIONS (2)
  - PRURITUS [None]
  - URTICARIA [None]
